FAERS Safety Report 24989222 (Version 1)
Quarter: 2025Q1

REPORT INFORMATION
  Report Type: Spontaneous
  Country: US (occurrence: US)
  Receive Date: 20250220
  Receipt Date: 20250220
  Transmission Date: 20250409
  Serious: No
  Sender: TAIHO ONCOLOGY INC
  Company Number: US-TAIHOP-2025-001765

PATIENT
  Age: 80 Year
  Sex: Male
  Weight: 66.22 kg

DRUGS (1)
  1. INQOVI [Suspect]
     Active Substance: CEDAZURIDINE\DECITABINE
     Indication: Polycythaemia vera
     Dosage: CYCLE UNKNOWN ?CEDAZURIDINE 100 MG+DECITABINE 35 MG
     Route: 048

REACTIONS (3)
  - Constipation [Unknown]
  - Product use in unapproved indication [Unknown]
  - Inappropriate schedule of product administration [Unknown]
